FAERS Safety Report 5742998-5 (Version None)
Quarter: 2008Q2

REPORT INFORMATION
  Report Type: 
  Country: None (occurrence: None)
  Receive Date: 20080515
  Receipt Date: 20080515
  Transmission Date: 20081010
  Serious: Yes (Disabling)
  Sender: FDA-Public Use
  Company Number: None

PATIENT
  Age: 44 Year
  Sex: Female
  Weight: 58.0604 kg

DRUGS (2)
  1. TOPAMAX [Suspect]
     Indication: MIGRAINE
     Dosage: 200MG DAY PO
     Route: 048
     Dates: start: 20030810, end: 20050515
  2. TOPAMAX [Suspect]
     Indication: PAIN MANAGEMENT
     Dosage: 200MG DAY PO
     Route: 048
     Dates: start: 20030810, end: 20050515

REACTIONS (2)
  - BLINDNESS [None]
  - RETINAL VEIN OCCLUSION [None]
